FAERS Safety Report 8493004-3 (Version None)
Quarter: 2012Q2

REPORT INFORMATION
  Report Type: 
  Country: None (occurrence: None)
  Receive Date: 20120629
  Receipt Date: 20120629
  Transmission Date: 20120825
  Serious: Yes (Hospitalization)
  Sender: FDA-Public Use
  Company Number: None

PATIENT
  Age: 57 Year

DRUGS (1)
  1. NATALIZUMAB [Suspect]
     Dates: start: 20120323

REACTIONS (2)
  - MUSCULOSKELETAL PAIN [None]
  - HERPES ZOSTER [None]
